FAERS Safety Report 5990618-7 (Version None)
Quarter: 2008Q4

REPORT INFORMATION
  Report Type: 
  Country: None (occurrence: None)
  Receive Date: 20081211
  Receipt Date: 20081208
  Transmission Date: 20090506
  Serious: Yes (Other)
  Sender: FDA-Public Use
  Company Number: A0760036A

PATIENT
  Age: 19 Year
  Sex: Male

DRUGS (3)
  1. LAMICTAL [Suspect]
     Indication: DRUG USE FOR UNKNOWN INDICATION
     Dosage: 100MG PER DAY
     Route: 048
  2. TEMAZEPAM [Concomitant]
     Indication: INSOMNIA
  3. SUBUTEX [Concomitant]

REACTIONS (22)
  - ABDOMINAL PAIN UPPER [None]
  - CONJUNCTIVITIS INFECTIVE [None]
  - DRY SKIN [None]
  - FATIGUE [None]
  - HALLUCINATION [None]
  - HYPERAESTHESIA [None]
  - MALAISE [None]
  - MOUTH ULCERATION [None]
  - NAUSEA [None]
  - NIGHT BLINDNESS [None]
  - OROPHARYNGEAL PAIN [None]
  - PAIN [None]
  - PERFUME SENSITIVITY [None]
  - PHARYNGITIS STREPTOCOCCAL [None]
  - PHOTOPSIA [None]
  - PYREXIA [None]
  - RASH [None]
  - SKIN DISORDER [None]
  - THERMAL BURN [None]
  - TINNITUS [None]
  - VIRAL INFECTION [None]
  - VOMITING [None]
